FAERS Safety Report 21473056 (Version 2)
Quarter: 2023Q1

REPORT INFORMATION
  Report Type: Spontaneous
  Country: GB (occurrence: GB)
  Receive Date: 20221018
  Receipt Date: 20230206
  Transmission Date: 20230418
  Serious: Yes (Death, Other)
  Sender: FDA-Public Use
  Company Number: GB-LDELTA-NLLD0038431

PATIENT
  Age: 61 Year
  Sex: Male
  Weight: 75.9 kg

DRUGS (10)
  1. GEMCITABINE HYDROCHLORIDE [Suspect]
     Active Substance: GEMCITABINE HYDROCHLORIDE
     Indication: Pancreatic carcinoma
     Dosage: UNK (GEMCITABINE/CAPECITABINE COMBINED DOSE : 3600MG IV AND ORAL)
     Dates: start: 202208
  2. CAPECITABINE [Suspect]
     Active Substance: CAPECITABINE
     Indication: Pancreatic carcinoma
     Dosage: UNK
     Dates: start: 202208
  3. CLOZAPINE [Suspect]
     Active Substance: CLOZAPINE
     Indication: Schizophrenia
     Dosage: UNK
     Route: 050
     Dates: start: 20120724, end: 202203
  4. CLOZAPINE [Suspect]
     Active Substance: CLOZAPINE
     Dosage: TAKEN AT 6PM
     Route: 050
     Dates: start: 20220722
  5. CLOZAPINE [Suspect]
     Active Substance: CLOZAPINE
     Dosage: 175 MG, 1X/DAY
     Dates: start: 20221001
  6. CREON [Concomitant]
     Active Substance: PANCRELIPASE AMYLASE\PANCRELIPASE LIPASE\PANCRELIPASE PROTEASE
     Indication: Pancreatic failure
     Dosage: 225000 IU, DAILY
     Route: 048
     Dates: start: 202207
  7. HUMULIN L [Concomitant]
     Active Substance: INSULIN HUMAN
     Indication: Type 2 diabetes mellitus
     Dosage: 24 UNITS + 12 UNITS DAILY
     Route: 058
     Dates: start: 202206
  8. METFORMIN [Concomitant]
     Active Substance: METFORMIN HYDROCHLORIDE
     Indication: Type 2 diabetes mellitus
     Dosage: 1 G, DAILY
     Route: 050
     Dates: start: 202110
  9. ONDANSETRON [Concomitant]
     Active Substance: ONDANSETRON
     Indication: Prophylaxis of nausea and vomiting
     Dosage: 60 MG, DAILY
     Route: 048
     Dates: start: 202208
  10. VALPROATE SODIUM [Concomitant]
     Active Substance: VALPROATE SODIUM
     Indication: Mood swings
     Dosage: 1 G, DAILY
     Route: 048
     Dates: start: 202206

REACTIONS (13)
  - Neoplasm progression [Fatal]
  - Liver function test abnormal [Recovered/Resolved]
  - Platelet count decreased [Recovered/Resolved]
  - Neutrophil count decreased [Recovered/Resolved]
  - White blood cell count decreased [Recovered/Resolved]
  - Contraindicated product administered [Not Recovered/Not Resolved]
  - Colitis [Recovering/Resolving]
  - Sedation [Not Recovered/Not Resolved]
  - Platelet count increased [Recovered/Resolved]
  - Thrombocytopenia [Not Recovered/Not Resolved]
  - Neutrophil count increased [Recovered/Resolved]
  - White blood cell count increased [Recovered/Resolved]
  - Off label use [Unknown]

NARRATIVE: CASE EVENT DATE: 20220301
